FAERS Safety Report 24888312 (Version 2)
Quarter: 2025Q3

REPORT INFORMATION
  Report Type: Report from Study
  Country: US (occurrence: US)
  Receive Date: 20250127
  Receipt Date: 20250803
  Transmission Date: 20251020
  Serious: Yes (Hospitalization, Other)
  Sender: ALEXION PHARMACEUTICALS
  Company Number: US-AstraZeneca-CH-00791340A

PATIENT
  Sex: Female
  Weight: 58.05 kg

DRUGS (1)
  1. STRENSIQ [Suspect]
     Active Substance: ASFOTASE ALFA
     Indication: Hypophosphatasia
     Route: 065

REACTIONS (6)
  - Pancreatitis [Recovered/Resolved]
  - Ileus [Recovered/Resolved]
  - Immunodeficiency common variable [Unknown]
  - Weight decreased [Unknown]
  - Salivary gland calculus [Not Recovered/Not Resolved]
  - Electrolyte imbalance [Recovered/Resolved]
